FAERS Safety Report 8523686-9 (Version None)
Quarter: 2012Q3

REPORT INFORMATION
  Report Type: 
  Country: None (occurrence: None)
  Receive Date: 20120720
  Receipt Date: 20120711
  Transmission Date: 20120928
  Serious: Yes (Hospitalization, Other)
  Sender: FDA-Public Use
  Company Number: FI-SANOFI-AVENTIS-2012SA044558

PATIENT
  Age: 55 Year
  Sex: Female

DRUGS (9)
  1. FLECAINIDE ACETATE [Suspect]
     Indication: ATRIAL FIBRILLATION
     Route: 065
  2. ATORVASTATIN [Suspect]
     Route: 065
  3. DRONEDARONE HCL [Suspect]
     Indication: ATRIAL FIBRILLATION
     Route: 065
  4. BISOPROLOL FUMARATE [Concomitant]
     Indication: HYPERTENSION
  5. WARFARIN SODIUM [Concomitant]
     Dosage: 12.5 MG AND 15 MG
  6. BUDESONIDE/FORMOTEROL FUMARATE [Concomitant]
     Indication: ASTHMA
  7. WARFARIN SODIUM [Concomitant]
  8. LOSARTAN POTASSIUM [Concomitant]
     Indication: HYPERTENSION
  9. SIMVASTATIN [Suspect]
     Route: 065

REACTIONS (11)
  - VISUAL IMPAIRMENT [None]
  - MEMORY IMPAIRMENT [None]
  - HEADACHE [None]
  - INFARCTION [None]
  - ATRIAL FIBRILLATION [None]
  - NAUSEA [None]
  - DIZZINESS [None]
  - DRUG INEFFECTIVE [None]
  - DISTURBANCE IN ATTENTION [None]
  - GAIT DISTURBANCE [None]
  - PAIN IN EXTREMITY [None]
